FAERS Safety Report 8966875 (Version 1)
Quarter: 2012Q4

REPORT INFORMATION
  Report Type: Report from Study
  Country: US (occurrence: US)
  Receive Date: 20121214
  Receipt Date: 20121214
  Transmission Date: 20130627
  Serious: Yes (Hospitalization)
  Sender: FDA-Public Use
  Company Number: US-009507513-1212USA004649

PATIENT
  Age: 68 Year
  Sex: Male
  Weight: 93.42 kg

DRUGS (11)
  1. TEMODAR [Suspect]
     Indication: GLIOBLASTOMA MULTIFORME
     Dosage: UNK, qd
     Route: 048
     Dates: start: 20090506, end: 20090616
  2. TEMODAR [Suspect]
     Dosage: (100mg, 1 in 1 D)UNK, qd
     Dates: start: 20090506, end: 20090616
  3. BEVACIZUMAB [Suspect]
     Indication: GLIOBLASTOMA MULTIFORME
     Dosage: 889 mg 1 in 2 weeks
     Route: 042
     Dates: start: 20090506, end: 20091021
  4. BEVACIZUMAB [Suspect]
     Dosage: UNK
     Route: 042
     Dates: start: 20090506, end: 20091021
  5. EVEROLIMUS [Suspect]
     Indication: GLIOBLASTOMA MULTIFORME
     Dosage: UNK
     Route: 042
     Dates: start: 20090715, end: 20091103
  6. EVEROLIMUS [Suspect]
     Dosage: (10 mg, 1 in 1 D)UNK
     Route: 048
     Dates: start: 20090715, end: 20091103
  7. LEXAPRO [Concomitant]
     Indication: PRODUCT USED FOR UNKNOWN INDICATION
     Dosage: 10 mg, 1 in 1D,
     Route: 048
     Dates: start: 20090320
  8. DIOVAN [Concomitant]
     Indication: PRODUCT USED FOR UNKNOWN INDICATION
     Dosage: 80 mg, 1 in 1 D, UNK
     Route: 048
     Dates: start: 1999
  9. NORVASC [Concomitant]
     Indication: PRODUCT USED FOR UNKNOWN INDICATION
     Dosage: 5mg, 1 in 1 D, qd
     Route: 048
     Dates: start: 20090928
  10. DEXAMETHASONE [Concomitant]
     Indication: PRODUCT USED FOR UNKNOWN INDICATION
     Dosage: 1mg 1 in 1D, qd
     Route: 048
     Dates: start: 20090325
  11. KEPPRA [Concomitant]
     Indication: PRODUCT USED FOR UNKNOWN INDICATION
     Dosage: 1000 mg, 1 in 1 D, qd
     Route: 048
     Dates: start: 200911

REACTIONS (1)
  - Chest pain [Recovered/Resolved]
